FAERS Safety Report 8622521-8 (Version None)
Quarter: 2012Q3

REPORT INFORMATION
  Report Type: 
  Country: None (occurrence: None)
  Receive Date: 20120827
  Receipt Date: 20120821
  Transmission Date: 20120928
  Serious: No
  Sender: FDA-Public Use
  Company Number: US-PFIZER INC-2012206005

PATIENT
  Age: 47 Year
  Sex: Female
  Weight: 70.295 kg

DRUGS (1)
  1. PREMARIN [Suspect]
     Indication: HORMONE REPLACEMENT THERAPY
     Dosage: 0.625 MG, DAILY
     Route: 048
     Dates: end: 20100101

REACTIONS (4)
  - HEADACHE [None]
  - HYPERTENSION [None]
  - HOT FLUSH [None]
  - VULVOVAGINAL DRYNESS [None]
